FAERS Safety Report 5160204-X (Version None)
Quarter: 2006Q4

REPORT INFORMATION
  Report Type: 
  Country: None (occurrence: None)
  Receive Date: 20061120
  Receipt Date: 20061108
  Transmission Date: 20070319
  Serious: Yes (Hospitalization)
  Sender: FDA-Public Use
  Company Number: 2006BI016246

PATIENT
  Age: 42 Year
  Sex: Female
  Weight: 45.3597 kg

DRUGS (1)
  1. AVONEX [Suspect]
     Indication: MULTIPLE SCLEROSIS
     Dosage: 30 UG, QW; IM
     Route: 030
     Dates: start: 20061015, end: 20061021

REACTIONS (14)
  - ACUTE RESPIRATORY DISTRESS SYNDROME [None]
  - AUTOIMMUNE HEPATITIS [None]
  - BLOOD GLUCOSE INCREASED [None]
  - COMA HEPATIC [None]
  - DEPRESSION [None]
  - DIALYSIS [None]
  - HEPATIC ENCEPHALOPATHY [None]
  - HEPATITIS VIRAL [None]
  - HEPATORENAL SYNDROME [None]
  - INFLUENZA LIKE ILLNESS [None]
  - INTERNATIONAL NORMALISED RATIO ABNORMAL [None]
  - MALLORY-WEISS SYNDROME [None]
  - PAIN [None]
  - PLATELET COUNT DECREASED [None]
